FAERS Safety Report 13814536 (Version 7)
Quarter: 2018Q2

REPORT INFORMATION
  Report Type: Report from Study
  Country: CA (occurrence: CA)
  Receive Date: 20170731
  Receipt Date: 20180619
  Transmission Date: 20180711
  Serious: Yes (Other)
  Sender: FDA-Public Use
  Company Number: CA-BRISTOL-MYERS SQUIBB COMPANY-BMS-2017-059280

PATIENT
  Age: 67 Year
  Sex: Female

DRUGS (1)
  1. ABATACEPT [Suspect]
     Active Substance: ABATACEPT
     Indication: RHEUMATOID ARTHRITIS
     Dosage: 125 MG, QWK
     Route: 058
     Dates: start: 20170621

REACTIONS (16)
  - Nasopharyngitis [Unknown]
  - Nasal congestion [Unknown]
  - Ear discomfort [Unknown]
  - Ear infection [Recovering/Resolving]
  - Contusion [Recovering/Resolving]
  - Sinusitis [Recovering/Resolving]
  - Fatigue [Recovered/Resolved]
  - Atrial fibrillation [Unknown]
  - Chills [Unknown]
  - Diarrhoea [Unknown]
  - Cough [Unknown]
  - Nausea [Recovered/Resolved]
  - Arthritis [Unknown]
  - Off label use [Unknown]
  - Paraesthesia [Unknown]
  - Headache [Unknown]

NARRATIVE: CASE EVENT DATE: 20170621
